FAERS Safety Report 7492816-2 (Version None)
Quarter: 2011Q2

REPORT INFORMATION
  Report Type: 
  Country: None (occurrence: None)
  Receive Date: 20110513
  Receipt Date: 20110509
  Transmission Date: 20111010
  Serious: Yes (Hospitalization, Disabling, Other)
  Sender: FDA-Public Use
  Company Number: WAES 1105USA01405

PATIENT
  Age: 56 Year
  Sex: Male
  Weight: 69.8539 kg

DRUGS (6)
  1. PLAVIX [Concomitant]
  2. LIPITOR [Suspect]
     Indication: BLOOD CHOLESTEROL INCREASED
     Dosage: 80 MG, PO
     Route: 048
  3. COREG [Concomitant]
  4. NIASPAN [Concomitant]
  5. MAVIK [Concomitant]
  6. ZOCOR [Suspect]
     Dosage: PO
     Route: 048

REACTIONS (4)
  - RENAL DISORDER [None]
  - VISUAL IMPAIRMENT [None]
  - MYOCARDIAL INFARCTION [None]
  - AORTIC ANEURYSM [None]
